FAERS Safety Report 5678436-0 (Version None)
Quarter: 2008Q1

REPORT INFORMATION
  Report Type: 
  Country: None (occurrence: None)
  Receive Date: 20080320
  Receipt Date: 20080310
  Transmission Date: 20080703
  Serious: Yes (Other)
  Sender: FDA-Public Use
  Company Number: GXKR2008GB02507

PATIENT
  Age: 27 Year
  Sex: Male
  Weight: 75 kg

DRUGS (5)
  1. METRONIDAZOLE [Suspect]
     Indication: ANAL FISSURE
     Dosage: 400 MG, ORAL
     Route: 048
     Dates: start: 20080215, end: 20080217
  2. BISMUTH HYDROXIDE W/ZINC OXIDE (BISMUTH HYDROXIDE, ZINC OXIDE) [Concomitant]
  3. HYOSCINE HBR HYT [Concomitant]
  4. FLOXACILLIN SODIUM [Concomitant]
  5. LIDOCAINE (LIDOCAINE) , 5 % [Concomitant]

REACTIONS (5)
  - DELUSION [None]
  - DEPRESSION [None]
  - DIARRHOEA [None]
  - HALLUCINATION [None]
  - PARANOIA [None]
